FAERS Safety Report 9885764 (Version 1)
Quarter: 2014Q1

REPORT INFORMATION
  Report Type: Spontaneous
  Country: FR (occurrence: FR)
  Receive Date: 20140210
  Receipt Date: 20140210
  Transmission Date: 20141002
  Serious: Yes (Hospitalization)
  Sender: FDA-Public Use
  Company Number: FR-TEVA-460721ISR

PATIENT
  Age: 81 Year
  Sex: Female

DRUGS (18)
  1. LOPERAMIDE-LYOC [Suspect]
     Dosage: 4 MILLIGRAM DAILY;
     Route: 048
     Dates: start: 20110706, end: 20110822
  2. FOSINOPRIL HYDROCHLOROTHIAZIDE MYLAN 20 MG/12.5 MG [Suspect]
     Dosage: 1 TABLET DAILY; LONG-TERM TREATMENT
     Route: 048
     Dates: end: 20110822
  3. FUROSEMIDE MYLAN 40 MG [Suspect]
     Dosage: 40 MILLIGRAM DAILY; LONG-TERM TREATMENT
     Route: 048
     Dates: end: 20110822
  4. FLECTOR 1% [Suspect]
     Dosage: 2 DOSAGE FORMS DAILY;
     Route: 061
     Dates: start: 20110608, end: 20110822
  5. DIGOXINE NATIVELLE 0.25 MG [Suspect]
     Dosage: .4286 TABLET DAILY; ONE HALF-TABLET SIX DAYS A WEEK, LONG-TERM TREATMENT
     Route: 048
     Dates: end: 20110822
  6. GLUCOPHAGE [Suspect]
     Dosage: 3000 MILLIGRAM DAILY; LONG-TERM TREATMENT
     Route: 048
     Dates: end: 20110822
  7. CRESTOR 5 MG [Suspect]
     Dosage: 5 MILLIGRAM DAILY; LONG-TERM TREATMENT
     Route: 048
     Dates: end: 20110822
  8. ONGLYZA TABS 5 MG [Suspect]
     Dosage: 5 MILLIGRAM DAILY;
     Route: 048
     Dates: start: 20110706, end: 20110822
  9. PIASCLEDINE [Suspect]
     Dosage: 300 MILLIGRAM DAILY; LONG-TERM TREATMENT
     Route: 048
     Dates: end: 20110822
  10. DOMPERIDONE [Suspect]
     Dosage: ONE TO TWO TABLETS THREE TIMES A DAY
     Route: 048
     Dates: start: 20110706, end: 20110822
  11. LANSOPRAZOLE [Suspect]
     Dosage: 15 MILLIGRAM DAILY;
     Route: 048
     Dates: start: 20110706, end: 20110822
  12. DAFALGAN CODEINE [Suspect]
     Dosage: 4 TABLET DAILY;
     Route: 048
     Dates: start: 20110316, end: 20110822
  13. PREVISCAN [Suspect]
     Dosage: .75 TABLET DAILY; LONG-TERM TREATMENT
     Route: 048
     Dates: end: 20110822
  14. ZOLPIDEM [Suspect]
     Dosage: 5 MILLIGRAM DAILY;
     Route: 048
     Dates: start: 20110706, end: 20110822
  15. SMECTA [Suspect]
     Route: 048
     Dates: start: 20110816, end: 20110822
  16. PHLOROGLUCINOL ARROW [Suspect]
     Route: 048
     Dates: start: 20110816, end: 20110822
  17. METROPOLOL SANDOZ 100 MG [Concomitant]
  18. LEVOTHYROX 50 MCG [Concomitant]

REACTIONS (4)
  - Renal failure [Recovered/Resolved]
  - Hyperkalaemia [Recovered/Resolved]
  - Dehydration [Recovered/Resolved]
  - Metabolic acidosis [Recovered/Resolved]
